FAERS Safety Report 8854971 (Version 1)
Quarter: 2012Q4

REPORT INFORMATION
  Report Type: 
  Country: GR (occurrence: GR)
  Receive Date: 20121023
  Receipt Date: 20121023
  Transmission Date: 20130627
  Serious: Yes (Other)
  Sender: FDA-Public Use
  Company Number: GR-JNJFOC-20121008298

PATIENT
  Age: 5 None
  Sex: Male

DRUGS (6)
  1. REMICADE [Suspect]
     Indication: CROHN^S DISEASE
     Route: 042
     Dates: start: 20110627
  2. REMICADE [Suspect]
     Indication: CROHN^S DISEASE
     Dosage: 3rd infusion
     Route: 042
  3. REMICADE [Suspect]
     Indication: CROHN^S DISEASE
     Route: 042
     Dates: start: 20120903
  4. REMICADE [Suspect]
     Indication: CROHN^S DISEASE
     Route: 042
     Dates: start: 201104
  5. ANTIHISTAMINES [Concomitant]
     Indication: PREMEDICATION
     Route: 065
  6. CORTISONE [Concomitant]
     Indication: PREMEDICATION
     Route: 065

REACTIONS (6)
  - Colectomy [Unknown]
  - Pyrexia [Recovered/Resolved]
  - Oedema peripheral [Recovered/Resolved]
  - Arthralgia [Recovered/Resolved]
  - Dyspnoea [Recovered/Resolved]
  - Infusion related reaction [Recovered/Resolved]
